FAERS Safety Report 18924436 (Version 1)
Quarter: 2021Q1

REPORT INFORMATION
  Report Type: Spontaneous
  Country: US (occurrence: US)
  Receive Date: 20210222
  Receipt Date: 20210222
  Transmission Date: 20210420
  Serious: No
  Sender: FDA-Public Use
  Company Number: US-TEVA-2019-US-1084394

PATIENT
  Sex: Female

DRUGS (2)
  1. ATOMOXETINE TEVA [Suspect]
     Active Substance: ATOMOXETINE
     Indication: ANXIETY
     Dosage: 40 MILLIGRAM DAILY;
     Route: 065
  2. ATOMOXETINE TEVA [Suspect]
     Active Substance: ATOMOXETINE
     Indication: ATTENTION DEFICIT HYPERACTIVITY DISORDER

REACTIONS (1)
  - Mood altered [Recovered/Resolved]
